FAERS Safety Report 21929604 (Version 1)
Quarter: 2023Q1

REPORT INFORMATION
  Report Type: Spontaneous
  Country: US (occurrence: US)
  Receive Date: 20230131
  Receipt Date: 20230131
  Transmission Date: 20230418
  Serious: No
  Sender: FDA-Public Use
  Company Number: US-UCBSA-2022067007

PATIENT
  Age: 61 Year
  Sex: Male

DRUGS (3)
  1. KEPPRA [Suspect]
     Active Substance: LEVETIRACETAM
     Indication: Status epilepticus
  2. KEPPRA [Suspect]
     Active Substance: LEVETIRACETAM
     Indication: Off label use
  3. DILANTIN [Suspect]
     Active Substance: PHENYTOIN
     Indication: Status epilepticus

REACTIONS (2)
  - Drug resistance [Unknown]
  - Off label use [Unknown]
